FAERS Safety Report 17577423 (Version 2)
Quarter: 2020Q2

REPORT INFORMATION
  Report Type: Report from Study
  Country: CO (occurrence: CO)
  Receive Date: 20200324
  Receipt Date: 20200603
  Transmission Date: 20200713
  Serious: Yes (Hospitalization, Other)
  Sender: FDA-Public Use
  Company Number: CO-REGENERON PHARMACEUTICALS, INC.-2020-15778

PATIENT

DRUGS (1)
  1. EYLEA [Suspect]
     Active Substance: AFLIBERCEPT
     Indication: DIABETIC RETINAL OEDEMA
     Dosage: UNKNOWN DOSE, FREQUENCY AND TOTAL NUMBER OF DOSES
     Dates: start: 20190323, end: 20200317

REACTIONS (7)
  - Catheter site pain [Not Recovered/Not Resolved]
  - Abdominal distension [Unknown]
  - Dysuria [Unknown]
  - Eye disorder [Unknown]
  - Medical device site discharge [Unknown]
  - Urinary retention [Unknown]
  - Urinary tract infection [Not Recovered/Not Resolved]

NARRATIVE: CASE EVENT DATE: 201912
